FAERS Safety Report 9526843 (Version 1)
Quarter: 2013Q1

REPORT INFORMATION
  Report Type: Spontaneous
  Country: US (occurrence: None)
  Receive Date: 20130312
  Receipt Date: 20130312
  Transmission Date: 20140127
  Serious: No
  Sender: FDA-Public Use
  Company Number: TH-2013-00063

PATIENT
  Sex: Male
  Weight: 75 kg

DRUGS (7)
  1. EGRIFTA [Suspect]
     Indication: PRODUCT USED FOR UNKNOWN INDICATION
     Route: 058
  2. TESTOSTERONE (TESTOSTERONE) [Concomitant]
  3. NORVIR (RITONAVIR) [Concomitant]
  4. ISENTRESS (RALTEGRAVIR POTASSIUM) CHEWABLE TABLET [Concomitant]
  5. CARTIA XT (DILTIAZEM HYDROCHLORIDE) [Concomitant]
  6. ACYCLOVIR (ACICLOVIR) (ACICLOVIR) [Concomitant]
  7. LANSOPRAZOLE (LANSOPRAZOLE) [Concomitant]

REACTIONS (1)
  - Pollakiuria [None]
